FAERS Safety Report 18562807 (Version 1)
Quarter: 2020Q4

REPORT INFORMATION
  Report Type: Other
  Country: CA (occurrence: CA)
  Receive Date: 20201130
  Receipt Date: 20201130
  Transmission Date: 20210114
  Serious: Yes (Hospitalization, Other)
  Sender: FDA-Public Use
  Company Number: CA-CELLTRION INC.-2020CA032571

PATIENT

DRUGS (19)
  1. ACETAMINOPHEN. [Concomitant]
     Active Substance: ACETAMINOPHEN
     Dosage: 650.0 MILLIGRAM
     Route: 048
  2. ARANESP [Concomitant]
     Active Substance: DARBEPOETIN ALFA
     Dosage: 30.0 MICROGRAM, 1 EVERY 10 HOURS
     Route: 058
  3. WARFARIN [Concomitant]
     Active Substance: WARFARIN
     Dosage: 5.0 MILLIGRAM, 1 EVERY 1 DAY
     Route: 048
  4. TOPISONE [Concomitant]
     Dosage: 0.05 PERCENT
     Route: 061
  5. TRANDATE [Concomitant]
     Active Substance: LABETALOL HYDROCHLORIDE
     Dosage: 150.0 MILLIGRAM, 2 EVERY 1 DAY
     Route: 048
  6. TYLENOL [Concomitant]
     Active Substance: ACETAMINOPHEN
     Dosage: 650.0 MILLIGRAM
     Route: 048
  7. RITUXIMAB (UNKNOWN) [Suspect]
     Active Substance: RITUXIMAB
     Indication: PRODUCT USED FOR UNKNOWN INDICATION
     Dosage: UNK
     Route: 042
  8. ATORVASTATIN [Concomitant]
     Active Substance: ATORVASTATIN
     Dosage: 20.0 MILLIGRAM, 1 EVERY 1 DAY
     Route: 048
  9. AMLODIPINE [Concomitant]
     Active Substance: AMLODIPINE BESYLATE
     Dosage: 2.5 MILLIGRAM, 2 EVERY 1 DAY
     Route: 048
  10. VOLTAREN [DICLOFENAC] [Concomitant]
     Active Substance: DICLOFENAC SODIUM
     Dosage: 1.16 PERCENT
     Route: 061
  11. RITUXIMAB (UNKNOWN) [Suspect]
     Active Substance: RITUXIMAB
     Dosage: 1000.0 MILLIGRAM
     Route: 042
  12. METHYLPREDNISOLONE SODIUM SUCCINATE. [Concomitant]
     Active Substance: METHYLPREDNISOLONE SODIUM SUCCINATE
  13. OXAZEPAM. [Concomitant]
     Active Substance: OXAZEPAM
     Dosage: 10.0 MILLIGRAM
     Route: 048
  14. SENNOSIDES. [Concomitant]
     Active Substance: SENNOSIDES
     Dosage: 8.6 MILLIGRAM
     Route: 048
  15. AMITRIPTYLINE [Concomitant]
     Active Substance: AMITRIPTYLINE
     Dosage: 25.0 MILLIGRAM, 1 EVERY 1 DAY
     Route: 048
  16. HYDERM [Concomitant]
     Dosage: 1.0 PERCENT, 2 EVERY 1 DAY
     Route: 061
  17. HYDROXYCHLOROQUINE [Concomitant]
     Active Substance: HYDROXYCHLOROQUINE
     Dosage: 400.0 MILLIGRAM, 5 EVERY 1 WEEK
     Route: 048
  18. PERINDOPRIL [Concomitant]
     Active Substance: PERINDOPRIL
  19. TRANDATE [Concomitant]
     Active Substance: LABETALOL HYDROCHLORIDE
     Dosage: 50.0 MILLIGRAM, 2 EVERY 1 DAY
     Route: 048

REACTIONS (12)
  - Blood pressure systolic abnormal [Not Recovered/Not Resolved]
  - Heart rate decreased [Not Recovered/Not Resolved]
  - Body temperature decreased [Not Recovered/Not Resolved]
  - Oxygen saturation decreased [Not Recovered/Not Resolved]
  - Herpes zoster [Not Recovered/Not Resolved]
  - Blood pressure systolic increased [Not Recovered/Not Resolved]
  - Hypotension [Not Recovered/Not Resolved]
  - Mass [Not Recovered/Not Resolved]
  - Balance disorder [Not Recovered/Not Resolved]
  - Asthenia [Not Recovered/Not Resolved]
  - Pulmonary mass [Not Recovered/Not Resolved]
  - Decreased appetite [Not Recovered/Not Resolved]
